FAERS Safety Report 4825033-2 (Version None)
Quarter: 2005Q4

REPORT INFORMATION
  Report Type: 
  Country: None (occurrence: None)
  Receive Date: 20051014
  Receipt Date: 20050809
  Transmission Date: 20060501
  Serious: No
  Sender: FDA-Public Use
  Company Number: 2005SP002287

PATIENT
  Age: 40 Year
  Sex: Female
  Weight: 136.0791 kg

DRUGS (5)
  1. LUNESTA [Suspect]
     Indication: INSOMNIA
     Dosage: 3 MG;HS;ORAL
     Route: 048
     Dates: start: 20050805
  2. ATENOLOL [Concomitant]
  3. LEXAPRO [Concomitant]
  4. SYNTHROID [Concomitant]
  5. CYTOMEL [Concomitant]

REACTIONS (3)
  - ABNORMAL DREAMS [None]
  - DYSGEUSIA [None]
  - NAUSEA [None]
